FAERS Safety Report 6347369-9 (Version None)
Quarter: 2009Q3

REPORT INFORMATION
  Report Type: 
  Country: None (occurrence: None)
  Receive Date: 20090908
  Receipt Date: 20090908
  Transmission Date: 20100115
  Serious: Yes (Hospitalization)
  Sender: FDA-Public Use
  Company Number: None

PATIENT
  Sex: Female
  Weight: 61 kg

DRUGS (1)
  1. CISPLATIN [Suspect]
     Dosage: 66 MG

REACTIONS (12)
  - ADRENAL INSUFFICIENCY [None]
  - ANAEMIA [None]
  - CHILLS [None]
  - DEHYDRATION [None]
  - HEADACHE [None]
  - HYPOTENSION [None]
  - NAUSEA [None]
  - PNEUMONITIS [None]
  - PULMONARY OEDEMA [None]
  - PYREXIA [None]
  - THROMBOCYTOPENIA [None]
  - VOMITING [None]
